FAERS Safety Report 25037202 (Version 1)
Quarter: 2025Q1

REPORT INFORMATION
  Report Type: Spontaneous
  Country: US (occurrence: US)
  Receive Date: 20250304
  Receipt Date: 20250304
  Transmission Date: 20250409
  Serious: No
  Sender: MYLAN
  Company Number: US-MYLANLABS-2025M1015940

PATIENT
  Age: 47 Year
  Sex: Female

DRUGS (16)
  1. GABAPENTIN [Suspect]
     Active Substance: GABAPENTIN
     Indication: Product used for unknown indication
  2. GABAPENTIN [Suspect]
     Active Substance: GABAPENTIN
     Route: 065
  3. GABAPENTIN [Suspect]
     Active Substance: GABAPENTIN
     Route: 065
  4. GABAPENTIN [Suspect]
     Active Substance: GABAPENTIN
  5. LORLATINIB [Suspect]
     Active Substance: LORLATINIB
     Indication: Small cell lung cancer
     Dosage: 100 MILLIGRAM, QD
     Dates: start: 20220919
  6. LORLATINIB [Suspect]
     Active Substance: LORLATINIB
     Dosage: 100 MILLIGRAM, QD
     Dates: start: 20220919
  7. LORLATINIB [Suspect]
     Active Substance: LORLATINIB
     Dosage: 100 MILLIGRAM, QD
     Route: 065
     Dates: start: 20220919
  8. LORLATINIB [Suspect]
     Active Substance: LORLATINIB
     Dosage: 100 MILLIGRAM, QD
     Route: 065
     Dates: start: 20220919
  9. LORLATINIB [Suspect]
     Active Substance: LORLATINIB
     Dosage: 75 MILLIGRAM, QD
     Dates: start: 202302
  10. LORLATINIB [Suspect]
     Active Substance: LORLATINIB
     Dosage: 75 MILLIGRAM, QD
     Dates: start: 202302
  11. LORLATINIB [Suspect]
     Active Substance: LORLATINIB
     Dosage: 75 MILLIGRAM, QD
     Route: 065
     Dates: start: 202302
  12. LORLATINIB [Suspect]
     Active Substance: LORLATINIB
     Dosage: 75 MILLIGRAM, QD
     Route: 065
     Dates: start: 202302
  13. FENOFIBRATE [Concomitant]
     Active Substance: FENOFIBRATE
     Indication: Blood triglycerides
  14. FENOFIBRATE [Concomitant]
     Active Substance: FENOFIBRATE
     Route: 065
  15. FENOFIBRATE [Concomitant]
     Active Substance: FENOFIBRATE
     Route: 065
  16. FENOFIBRATE [Concomitant]
     Active Substance: FENOFIBRATE

REACTIONS (4)
  - Brain fog [Unknown]
  - Dyscalculia [Unknown]
  - Constipation [Unknown]
  - Fatigue [Unknown]
